FAERS Safety Report 20490574 (Version 2)
Quarter: 2022Q4

REPORT INFORMATION
  Report Type: Spontaneous
  Country: US (occurrence: US)
  Receive Date: 20220218
  Receipt Date: 20221220
  Transmission Date: 20230113
  Serious: Yes (Death, Hospitalization, Other)
  Sender: FDA-Public Use
  Company Number: US-PFIZER INC-202200260917

PATIENT
  Age: 44 Year
  Sex: Male

DRUGS (2)
  1. METOPROLOL TARTRATE [Suspect]
     Active Substance: METOPROLOL TARTRATE
     Dosage: UNK (PARENTERAL)
     Route: 051
  2. METOPROLOL [Suspect]
     Active Substance: METOPROLOL
     Dosage: UNK (INGESTION)
     Route: 048

REACTIONS (1)
  - Death [Fatal]

NARRATIVE: CASE EVENT DATE: 20200101
